FAERS Safety Report 8923817 (Version 1)
Quarter: 2012Q4

REPORT INFORMATION
  Report Type: 
  Country: PL (occurrence: PL)
  Receive Date: 20121126
  Receipt Date: 20121126
  Transmission Date: 20130627
  Serious: Yes (Hospitalization, Other)
  Sender: FDA-Public Use
  Company Number: PL-PFIZER INC-2012280434

PATIENT
  Age: 24 Year
  Sex: Male
  Weight: 65 kg

DRUGS (5)
  1. XANAX [Suspect]
     Indication: ANXIETY
     Dosage: 0.5 mg, 2x/day
     Route: 048
  2. XANAX [Suspect]
     Indication: PSYCHOLOGICAL TRAUMA
     Dosage: 2 mg, 4x/day
     Route: 048
  3. ZOLOFT [Concomitant]
     Dosage: 20 mg, 1x/day
  4. PAROXETINE [Concomitant]
     Dosage: UNK
  5. HYDROXYZINE [Concomitant]
     Indication: SLEEP DIFFICULT
     Dosage: UNK, occasionally

REACTIONS (8)
  - Drug dependence [Unknown]
  - Alcohol abuse [Unknown]
  - Toxicity to various agents [Unknown]
  - Withdrawal syndrome [Unknown]
  - Convulsion [Unknown]
  - Panic attack [Unknown]
  - Feeling abnormal [Unknown]
  - Anxiety [Unknown]
